FAERS Safety Report 4724320-6 (Version None)
Quarter: 2005Q3

REPORT INFORMATION
  Report Type: 
  Country: None (occurrence: None)
  Receive Date: 20050722
  Receipt Date: 20050708
  Transmission Date: 20060218
  Serious: Yes (Hospitalization)
  Sender: FDA-Public Use
  Company Number: 2005S1005934

PATIENT
  Age: 48 Year
  Sex: Male

DRUGS (4)
  1. APOMORPHINE HYDROCHLORIDE (APOMORPHINE HYDROCHLORIDE) (10 MG/ML) [Suspect]
     Indication: PARKINSON'S DISEASE
     Dosage: 60 MG; QD; SC
     Route: 058
     Dates: start: 20030221
  2. MADOPAR (LEVODOPA/BENSERAZIDE) [Suspect]
     Indication: PARKINSON'S DISEASE
     Dosage: 1.4 GM; QD; PO
     Route: 048
     Dates: start: 19961014
  3. PRAMIPEXOLE [Concomitant]
  4. OLANZAPINE [Concomitant]

REACTIONS (5)
  - ANAEMIA HAEMOLYTIC AUTOIMMUNE [None]
  - ASPARTATE AMINOTRANSFERASE INCREASED [None]
  - BLOOD BILIRUBIN INCREASED [None]
  - HAEMOLYSIS [None]
  - JAUNDICE [None]
